FAERS Safety Report 6582044-7 (Version None)
Quarter: 2010Q1

REPORT INFORMATION
  Report Type: 
  Country: None (occurrence: None)
  Receive Date: 20100215
  Receipt Date: 20100209
  Transmission Date: 20100710
  Serious: Yes (Other)
  Sender: FDA-Public Use
  Company Number: US-AMGEN-QUU391490

PATIENT
  Sex: Male

DRUGS (4)
  1. NPLATE [Suspect]
     Indication: IDIOPATHIC THROMBOCYTOPENIC PURPURA
     Dates: start: 20081211
  2. GAMMAGARD [Concomitant]
  3. CORTICOSTEROIDS [Concomitant]
     Dates: start: 20081004
  4. IMMU-G [Concomitant]
     Dates: start: 20081008

REACTIONS (1)
  - CEREBROVASCULAR ACCIDENT [None]
